FAERS Safety Report 18894498 (Version 1)
Quarter: 2021Q1

REPORT INFORMATION
  Report Type: Report from Study
  Country: MA (occurrence: MA)
  Receive Date: 20210215
  Receipt Date: 20210215
  Transmission Date: 20210420
  Serious: Yes (Death)
  Sender: FDA-Public Use
  Company Number: NVSC2021MA035242

PATIENT
  Sex: Male

DRUGS (1)
  1. TASIGNA [Suspect]
     Active Substance: NILOTINIB
     Indication: LEUKAEMIA
     Dosage: 200 MG
     Route: 048
     Dates: start: 20191001

REACTIONS (4)
  - Brain injury [Fatal]
  - Illness [Fatal]
  - Leukaemia [Fatal]
  - Malignant neoplasm progression [Fatal]
